FAERS Safety Report 24629898 (Version 3)
Quarter: 2025Q2

REPORT INFORMATION
  Report Type: Spontaneous
  Country: US (occurrence: US)
  Receive Date: 20241118
  Receipt Date: 20250428
  Transmission Date: 20250717
  Serious: No
  Sender: BIOGEN
  Company Number: US-BIOGEN-2023BI01224594

PATIENT
  Sex: Female

DRUGS (15)
  1. VUMERITY [Suspect]
     Active Substance: DIROXIMEL FUMARATE
     Indication: Multiple sclerosis
     Route: 050
     Dates: start: 20230919
  2. VUMERITY [Suspect]
     Active Substance: DIROXIMEL FUMARATE
     Dosage: WAS TAKING LOWER DOSES ONE A DAY
     Route: 050
  3. VUMERITY [Suspect]
     Active Substance: DIROXIMEL FUMARATE
     Route: 050
  4. VUMERITY [Suspect]
     Active Substance: DIROXIMEL FUMARATE
     Route: 050
     Dates: start: 202410, end: 202410
  5. VUMERITY [Suspect]
     Active Substance: DIROXIMEL FUMARATE
     Dosage: 1 PILL BID (TWICE DAILY)
     Route: 050
  6. METOPROLOL TARTRATE [Concomitant]
     Active Substance: METOPROLOL TARTRATE
     Route: 050
  7. ISOSORBIDE MONONITRATE [Concomitant]
     Active Substance: ISOSORBIDE MONONITRATE
     Route: 050
  8. ASPIRIN [Concomitant]
     Active Substance: ASPIRIN
     Route: 050
  9. VITAMIN B COMPLEX [Concomitant]
     Active Substance: CYANOCOBALAMIN\DEXPANTHENOL\NIACINAMIDE\PYRIDOXINE HYDROCHLORIDE\RIBOFLAVIN 5^-PHOSPHATE SODIUM\THIA
     Route: 050
  10. METFORMIN HYDROCHLORIDE [Concomitant]
     Active Substance: METFORMIN HYDROCHLORIDE
     Route: 050
  11. ATORVASTATIN CALCIUM [Concomitant]
     Active Substance: ATORVASTATIN CALCIUM
     Route: 050
  12. MAGNESIUM [Concomitant]
     Active Substance: MAGNESIUM
     Route: 050
  13. JARDIANCE [Concomitant]
     Active Substance: EMPAGLIFLOZIN
     Route: 050
  14. TRULICITY [Concomitant]
     Active Substance: DULAGLUTIDE
     Route: 050
  15. LEVEMIR [Concomitant]
     Active Substance: INSULIN DETEMIR
     Indication: Product used for unknown indication
     Dosage: 16 UNITS
     Route: 050

REACTIONS (6)
  - Product dose omission issue [Unknown]
  - Gastrointestinal disorder [Not Recovered/Not Resolved]
  - Abdominal discomfort [Recovered/Resolved]
  - Dyspepsia [Not Recovered/Not Resolved]
  - Nausea [Unknown]
  - Abdominal pain upper [Unknown]

NARRATIVE: CASE EVENT DATE: 20230101
